FAERS Safety Report 13443448 (Version 4)
Quarter: 2018Q1

REPORT INFORMATION
  Report Type: Report from Study
  Country: BR (occurrence: BR)
  Receive Date: 20170414
  Receipt Date: 20180228
  Transmission Date: 20180508
  Serious: Yes (Hospitalization, Other)
  Sender: FDA-Public Use
  Company Number: PHHY2017BR056603

PATIENT
  Sex: Female
  Weight: 60 kg

DRUGS (10)
  1. ENSURE [Concomitant]
     Active Substance: AMINO ACIDS\DEXTROSE\ELECTROLYTES NOS\SOYBEAN OIL\VITAMINS
     Indication: PRODUCT USED FOR UNKNOWN INDICATION
     Route: 065
  2. DONILA [Concomitant]
     Active Substance: DONEPEZIL HYDROCHLORIDE
     Indication: PRODUCT USED FOR UNKNOWN INDICATION
     Dosage: UNK
     Route: 065
     Dates: start: 2012
  3. HEMATIN [Concomitant]
     Active Substance: HEMATIN
     Indication: PRODUCT USED FOR UNKNOWN INDICATION
     Dosage: 1 DF, QD (START APPROXIMATELY 1 YEAR AGO)
     Route: 065
  4. EXELON PATCH [Suspect]
     Active Substance: RIVASTIGMINE
     Indication: DEMENTIA ALZHEIMER^S TYPE
     Dosage: 9.5 MG, QD PATCH 10 (CM2)
     Route: 062
     Dates: start: 2013
  5. DONEPEZIL. [Concomitant]
     Active Substance: DONEPEZIL
     Indication: PRODUCT USED FOR UNKNOWN INDICATION
     Route: 065
  6. MEMANTINA [Concomitant]
     Active Substance: MEMANTINE HYDROCHLORIDE
     Indication: PRODUCT USED FOR UNKNOWN INDICATION
     Route: 065
  7. EXELON PATCH [Suspect]
     Active Substance: RIVASTIGMINE
     Dosage: 13.3 MG, QD PATCH 15 (CM2)
     Route: 062
     Dates: start: 2013
  8. ERANZ [Concomitant]
     Active Substance: DONEPEZIL HYDROCHLORIDE
     Indication: PRODUCT USED FOR UNKNOWN INDICATION
     Route: 065
  9. CALCIUM [Concomitant]
     Active Substance: CALCIUM
     Indication: OSTEOPOROSIS
     Dosage: 1 DF, QD (SECOND HALF OF LAST YEAR)
     Route: 065
  10. CALCIUM [Concomitant]
     Active Substance: CALCIUM
     Dosage: 1 DF, QMO (SECOND HALF OF LAST YEAR)
     Route: 065

REACTIONS (13)
  - Blood pressure increased [Unknown]
  - Decreased appetite [Recovered/Resolved]
  - Inappropriate schedule of drug administration [Unknown]
  - Cardiac asthma [Not Recovered/Not Resolved]
  - Pulmonary oedema [Not Recovered/Not Resolved]
  - Emphysema [Unknown]
  - Osteoporosis [Recovered/Resolved]
  - Weight decreased [Recovered/Resolved]
  - Confusional state [Unknown]
  - Dyspnoea [Not Recovered/Not Resolved]
  - Cardiac failure [Not Recovered/Not Resolved]
  - Wheezing [Not Recovered/Not Resolved]
  - Body height decreased [Recovered/Resolved]

NARRATIVE: CASE EVENT DATE: 2015
